FAERS Safety Report 10096580 (Version 1)
Quarter: 2014Q2

REPORT INFORMATION
  Report Type: Spontaneous
  Country: US (occurrence: US)
  Receive Date: 20140422
  Receipt Date: 20140422
  Transmission Date: 20141212
  Serious: Yes (Death)
  Sender: FDA-Public Use
  Company Number: US-BRISTOL-MYERS SQUIBB COMPANY-20628012

PATIENT
  Age: 86 Year
  Sex: Female

DRUGS (2)
  1. ELIQUIS [Suspect]
  2. BABY ASPIRIN [Concomitant]

REACTIONS (1)
  - Death [Fatal]
